FAERS Safety Report 23222668 (Version 1)
Quarter: 2023Q4

REPORT INFORMATION
  Report Type: Spontaneous
  Country: US (occurrence: US)
  Receive Date: 20231123
  Receipt Date: 20231123
  Transmission Date: 20240110
  Serious: No
  Sender: FDA-Public Use
  Company Number: US-KERYX BIOPHARMACEUTICALS INC.-US-AKEB-22-022559

PATIENT
  Sex: Male

DRUGS (2)
  1. AURYXIA [Suspect]
     Active Substance: TETRAFERRIC TRICITRATE DECAHYDRATE
     Indication: Renal impairment
     Dosage: 1 TABLET, TID WITH MEALS
     Route: 048
     Dates: end: 2022
  2. PURE BAKING SODA [Concomitant]
     Active Substance: SODIUM BICARBONATE
     Indication: Dyspepsia
     Dosage: UNK
     Route: 065

REACTIONS (2)
  - Product availability issue [Unknown]
  - Off label use [Unknown]

NARRATIVE: CASE EVENT DATE: 20220101
